FAERS Safety Report 11175870 (Version 1)
Quarter: 2015Q2

REPORT INFORMATION
  Report Type: Spontaneous
  Country: CH (occurrence: CH)
  Receive Date: 20150609
  Receipt Date: 20150609
  Transmission Date: 20150821
  Serious: Yes (Hospitalization, Other)
  Sender: FDA-Public Use
  Company Number: CH-ABBVIE-15P-151-1390732-00

PATIENT
  Age: 47 Year
  Sex: Male
  Weight: 61.6 kg

DRUGS (2)
  1. VIEKIRAX [Suspect]
     Active Substance: OMBITASVIR\PARITAPREVIR\RITONAVIR
     Indication: HEPATITIS C
     Dosage: 2 PILLS IN THE MORNING
     Route: 048
     Dates: start: 20150429, end: 20150515
  2. EXVIERA [Suspect]
     Active Substance: DASABUVIR
     Indication: HEPATITIS C
     Dosage: 1 IN THE EVENING, 1 IN THE MORNING
     Route: 048
     Dates: start: 20150429, end: 20150515

REACTIONS (6)
  - Activities of daily living impaired [Unknown]
  - Drug clearance decreased [Unknown]
  - Toxic encephalopathy [Unknown]
  - Fatigue [Recovering/Resolving]
  - Portal vein thrombosis [Unknown]
  - Confusional state [Not Recovered/Not Resolved]

NARRATIVE: CASE EVENT DATE: 20150503
